FAERS Safety Report 6253509-2 (Version None)
Quarter: 2009Q2

REPORT INFORMATION
  Report Type: 
  Country: None (occurrence: None)
  Receive Date: 20090629
  Receipt Date: 20090629
  Transmission Date: 20091009
  Serious: No
  Sender: FDA-Public Use
  Company Number: None

PATIENT
  Age: 49 Year
  Sex: Female

DRUGS (2)
  1. SARGRAMOSTIM [Suspect]
     Indication: CHEMOTHERAPY
     Dosage: 500 MCG EVERY DAY SQ
     Route: 058
     Dates: start: 20090101, end: 20090101
  2. SARGRAMOSTIM [Suspect]
     Indication: SUPPORTIVE CARE
     Dosage: 500 MCG EVERY DAY SQ
     Route: 058
     Dates: start: 20090101, end: 20090101

REACTIONS (4)
  - NAUSEA [None]
  - PRURITUS [None]
  - THROAT TIGHTNESS [None]
  - VOMITING [None]
